FAERS Safety Report 6432253-2 (Version None)
Quarter: 2009Q4

REPORT INFORMATION
  Report Type: 
  Country: None (occurrence: None)
  Receive Date: 20091105
  Receipt Date: 20091029
  Transmission Date: 20100525
  Serious: Yes (Death)
  Sender: FDA-Public Use
  Company Number: SPV1-2009-01359

PATIENT
  Age: 56 Year
  Sex: Male

DRUGS (12)
  1. FOSRENOL [Suspect]
     Indication: HYPERPHOSPHATAEMIA
     Dosage: ORAL
     Route: 048
     Dates: start: 20090528, end: 20090620
  2. CALTAN        (CALCIUM CARBONATE) [Concomitant]
  3. RENAGEL [Concomitant]
  4. ALCADOL (ALFACALCIDOL) [Concomitant]
  5. NEUFAN (ALLOPURINOL) [Concomitant]
  6. LASIX [Concomitant]
  7. ADALAT CC [Concomitant]
  8. BASEN (VOGLIBOSE) [Concomitant]
  9. LANSOPRAZOLE [Concomitant]
  10. ELCITONIN (ELCATONIN) [Concomitant]
  11. NEUROTROPIN /00049301/ (SMALLPOX VACCINE) [Concomitant]
  12. EPOGIN (EPOETIN BETA) [Concomitant]

REACTIONS (4)
  - ARRHYTHMIA [None]
  - ARTHRALGIA [None]
  - HYPOKALAEMIA [None]
  - SUDDEN DEATH [None]
